FAERS Safety Report 10952873 (Version 1)
Quarter: 2015Q1

REPORT INFORMATION
  Report Type: Spontaneous
  Country: US (occurrence: None)
  Receive Date: 20150324
  Receipt Date: 20150324
  Transmission Date: 20150721
  Serious: No
  Sender: FDA-Public Use
  Company Number: None

PATIENT
  Age: 47 Year

DRUGS (2)
  1. LISINOPRIL. [Concomitant]
     Active Substance: LISINOPRIL
  2. MIRVASO [Suspect]
     Active Substance: BRIMONIDINE TARTRATE
     Indication: ROSACEA
     Route: 061
     Dates: start: 20141117, end: 20150323

REACTIONS (6)
  - Swelling [None]
  - Pharyngeal oedema [None]
  - Throat tightness [None]
  - Headache [None]
  - Thyroid disorder [None]
  - Dizziness [None]

NARRATIVE: CASE EVENT DATE: 20150323
